FAERS Safety Report 24268627 (Version 2)
Quarter: 2024Q4

REPORT INFORMATION
  Report Type: Report from Study
  Country: JP (occurrence: JP)
  Receive Date: 20240830
  Receipt Date: 20241004
  Transmission Date: 20250115
  Serious: Yes (Other)
  Sender: JOHNSON AND JOHNSON
  Company Number: JP-JNJFOC-20240875643

PATIENT

DRUGS (2)
  1. DARATUMUMAB [Suspect]
     Active Substance: DARATUMUMAB
     Indication: Plasma cell myeloma
     Dosage: DOSE UNKNOWN
     Route: 058
  2. DARZALEX [Suspect]
     Active Substance: DARATUMUMAB
     Indication: Plasma cell myeloma
     Dosage: DOSE UNKNOWN
     Route: 042

REACTIONS (2)
  - Cytomegalovirus chorioretinitis [Unknown]
  - Cytomegalovirus infection [Unknown]
